FAERS Safety Report 16975133 (Version 1)
Quarter: 2019Q4

REPORT INFORMATION
  Report Type: Spontaneous
  Country: US (occurrence: US)
  Receive Date: 20190913
  Receipt Date: 20190913
  Transmission Date: 20200122
  Serious: Yes (Life-Threatening)
  Sender: FDA-Public Use
  Company Number: None

PATIENT
  Age: 58 Year
  Sex: Female
  Weight: 70.3 kg

DRUGS (2)
  1. LEVETIRACETAM 500MG [Suspect]
     Active Substance: LEVETIRACETAM
     Indication: EPILEPSY
     Dosage: ?          OTHER FREQUENCY:Q 12 H;?
  2. LEVETIRACETAM 1000MG [Suspect]
     Active Substance: LEVETIRACETAM
     Indication: EPILEPSY
     Dosage: ?          OTHER FREQUENCY:Q 12 H;?
     Route: 042

REACTIONS (5)
  - Ventricular fibrillation [None]
  - Electrocardiogram QT prolonged [None]
  - Torsade de pointes [None]
  - Cardiac arrest [None]
  - HERG gene mutation [None]

NARRATIVE: CASE EVENT DATE: 20190731
